FAERS Safety Report 16022319 (Version 2)
Quarter: 2019Q1

REPORT INFORMATION
  Report Type: Spontaneous
  Country: CN (occurrence: CN)
  Receive Date: 20190301
  Receipt Date: 20190311
  Transmission Date: 20190418
  Serious: Yes (Death, Other)
  Sender: FDA-Public Use
  Company Number: CN-ROCHE-2269668

PATIENT
  Age: 60 Year
  Sex: Female

DRUGS (16)
  1. HERCEPTIN [Suspect]
     Active Substance: TRASTUZUMAB
     Route: 041
     Dates: start: 20151221, end: 20160115
  2. 5-FLUOROURACIL [Suspect]
     Active Substance: FLUOROURACIL
     Route: 042
     Dates: start: 20150704, end: 20150821
  3. OXALIPLATIN. [Suspect]
     Active Substance: OXALIPLATIN
     Indication: ADENOCARCINOMA GASTRIC
     Dosage: ON DAY 2 OF EACH CYCLE
     Route: 041
     Dates: start: 20150401, end: 20150514
  4. GIMERACIL/OTERACIL POTASSIUM [Concomitant]
     Indication: ADENOCARCINOMA GASTRIC
     Route: 065
     Dates: end: 20141230
  5. LIPOSOMAL PACLITAXEL [Concomitant]
     Active Substance: PACLITAXEL
     Indication: ADENOCARCINOMA GASTRIC
     Route: 041
     Dates: start: 20151106, end: 20151127
  6. HERCEPTIN [Suspect]
     Active Substance: TRASTUZUMAB
     Indication: ADENOCARCINOMA GASTRIC
     Dosage: LOADING DOSE?DAY 1 OF EACH CYCLE
     Route: 041
     Dates: start: 20150401
  7. HERCEPTIN [Suspect]
     Active Substance: TRASTUZUMAB
     Route: 041
     Dates: start: 20150704, end: 20150821
  8. HERCEPTIN [Suspect]
     Active Substance: TRASTUZUMAB
     Route: 041
     Dates: start: 20151106, end: 20151127
  9. HERCEPTIN [Suspect]
     Active Substance: TRASTUZUMAB
     Route: 041
     Dates: start: 201603, end: 201606
  10. OXALIPLATIN. [Suspect]
     Active Substance: OXALIPLATIN
     Route: 041
     Dates: start: 20150704, end: 20150821
  11. 5-FLUOROURACIL [Suspect]
     Active Substance: FLUOROURACIL
     Indication: ADENOCARCINOMA GASTRIC
     Dosage: CONTINUOUS INTRAVENOUS INFUSION 120 HOURS?REPEATED ONCE EVERY THREE WEEKS
     Route: 042
     Dates: start: 20150401, end: 20150514
  12. HERCEPTIN [Suspect]
     Active Substance: TRASTUZUMAB
     Route: 041
     Dates: start: 20150915, end: 20151012
  13. APATINIB MESYLATE [Concomitant]
     Active Substance: APATINIB
     Indication: ADENOCARCINOMA GASTRIC
     Route: 048
     Dates: start: 20151221, end: 20160115
  14. HERCEPTIN [Suspect]
     Active Substance: TRASTUZUMAB
     Route: 041
     Dates: end: 20150514
  15. HERCEPTIN [Suspect]
     Active Substance: TRASTUZUMAB
     Route: 041
     Dates: start: 20150604
  16. APATINIB MESYLATE [Concomitant]
     Active Substance: APATINIB
     Route: 048
     Dates: start: 201603, end: 201606

REACTIONS (6)
  - Femur fracture [Unknown]
  - Fall [Unknown]
  - White blood cell count decreased [Unknown]
  - Death [Fatal]
  - Hepatic function abnormal [Recovered/Resolved]
  - Diarrhoea [Unknown]

NARRATIVE: CASE EVENT DATE: 20160202
